FAERS Safety Report 7909646-7 (Version None)
Quarter: 2011Q4

REPORT INFORMATION
  Report Type: 
  Country: None (occurrence: None)
  Receive Date: 20111111
  Receipt Date: 20111103
  Transmission Date: 20120403
  Serious: Yes (Life-Threatening, Hospitalization, Disabling, Other)
  Sender: FDA-Public Use
  Company Number: US-GLAXOSMITHKLINE-A0951882A

PATIENT
  Age: 66 Year
  Sex: Female
  Weight: 102 kg

DRUGS (14)
  1. CLARITIN [Concomitant]
  2. METFORMIN HCL [Concomitant]
  3. CELEBREX [Concomitant]
  4. PERCOCET [Concomitant]
  5. LEVOTHYROXINE SODIUM [Concomitant]
  6. BENEFIBER [Concomitant]
  7. ZOCOR [Concomitant]
  8. PROTONIX [Concomitant]
  9. VITAMIN D [Concomitant]
  10. LEXAPRO [Concomitant]
  11. ARIXTRA [Suspect]
     Indication: DEEP VEIN THROMBOSIS
     Dosage: 10MG PER DAY
     Route: 058
     Dates: start: 20111024, end: 20111031
  12. COUMADIN [Suspect]
     Indication: PRODUCT USED FOR UNKNOWN INDICATION
     Route: 065
  13. BUSPAR [Concomitant]
  14. POTASSIUM [Concomitant]

REACTIONS (6)
  - RENAL IMPAIRMENT [None]
  - BLOOD CREATININE INCREASED [None]
  - RETROPERITONEAL HAEMORRHAGE [None]
  - PROTHROMBIN TIME ABNORMAL [None]
  - HYPOTENSION [None]
  - INTERNATIONAL NORMALISED RATIO FLUCTUATION [None]
